FAERS Safety Report 5231310-6 (Version None)
Quarter: 2007Q1

REPORT INFORMATION
  Report Type: 
  Country: None (occurrence: None)
  Receive Date: 20070202
  Receipt Date: 20070125
  Transmission Date: 20070707
  Serious: Yes (Hospitalization, Other)
  Sender: FDA-Public Use
  Company Number: 163-21880-06120343

PATIENT
  Age: 81 Year
  Sex: Male
  Weight: 68.0396 kg

DRUGS (8)
  1. REVLIMID [Suspect]
     Indication: MYELODYSPLASTIC SYNDROME
     Dosage: 5 MG, 1 IN 1 D, ORAL
     Route: 048
     Dates: start: 20060901, end: 20061116
  2. LASIX [Concomitant]
  3. POTASSIUM CHLORIDE [Concomitant]
  4. TRENTAL [Concomitant]
  5. TRAZODONE HCL [Concomitant]
  6. QUININE SULFATE [Concomitant]
  7. ZESTRIL [Concomitant]
  8. OCUVITE (OCUVITE) [Concomitant]

REACTIONS (6)
  - LOCALISED INFECTION [None]
  - PAIN [None]
  - PANCYTOPENIA [None]
  - PARONYCHIA [None]
  - PNEUMONIA [None]
  - SEPSIS [None]
